FAERS Safety Report 13626637 (Version 1)
Quarter: 2017Q2

REPORT INFORMATION
  Report Type: Spontaneous
  Country: US (occurrence: US)
  Receive Date: 20170608
  Receipt Date: 20170608
  Transmission Date: 20170830
  Serious: No
  Sender: FDA-Public Use
  Company Number: US-ELI_LILLY_AND_COMPANY-US201706002239

PATIENT
  Sex: Female

DRUGS (4)
  1. ERBITUX [Suspect]
     Active Substance: CETUXIMAB
     Indication: NEOPLASM MALIGNANT
     Dosage: 200 MG, UNKNOWN
     Route: 042
     Dates: end: 20170606
  2. ERBITUX [Suspect]
     Active Substance: CETUXIMAB
     Dosage: 200 MG, UNKNOWN
     Route: 042
     Dates: end: 20170606
  3. ERBITUX [Suspect]
     Active Substance: CETUXIMAB
     Dosage: 200 MG, UNKNOWN
     Route: 042
     Dates: end: 20170606
  4. ERBITUX [Suspect]
     Active Substance: CETUXIMAB
     Indication: NEOPLASM MALIGNANT
     Dosage: 100 MG, UNKNOWN
     Route: 042
     Dates: end: 20170606

REACTIONS (1)
  - Blister [Not Recovered/Not Resolved]
